FAERS Safety Report 11091417 (Version 1)
Quarter: 2015Q2

REPORT INFORMATION
  Report Type: Spontaneous
  Country: DE (occurrence: DE)
  Receive Date: 20150505
  Receipt Date: 20150505
  Transmission Date: 20150821
  Serious: Yes (Hospitalization, Other)
  Sender: FDA-Public Use
  Company Number: DE-JNJFOC-20150314416

PATIENT
  Age: 19 Year
  Sex: Male
  Weight: 72 kg

DRUGS (5)
  1. REMICADE [Suspect]
     Active Substance: INFLIXIMAB
     Indication: COLITIS ULCERATIVE
     Dosage: 2ND DOSE
     Route: 042
     Dates: start: 20150410
  2. REMICADE [Suspect]
     Active Substance: INFLIXIMAB
     Indication: COLITIS ULCERATIVE
     Route: 042
     Dates: start: 20150225
  3. REMICADE [Suspect]
     Active Substance: INFLIXIMAB
     Indication: COLITIS ULCERATIVE
     Dosage: 2ND DOSE
     Route: 042
     Dates: start: 20150311
  4. SALOFALK [Concomitant]
     Active Substance: MESALAMINE
     Route: 065
  5. BUDENOFALK [Concomitant]
     Active Substance: BUDESONIDE
     Route: 065
     Dates: start: 2014

REACTIONS (8)
  - Myocarditis [Recovering/Resolving]
  - Campylobacter infection [Recovering/Resolving]
  - Acute prerenal failure [Recovering/Resolving]
  - Pneumonia [Recovering/Resolving]
  - Colitis ulcerative [Recovering/Resolving]
  - Hypovolaemia [Recovering/Resolving]
  - Pneumocystis jirovecii infection [Recovering/Resolving]
  - Anaemia [Not Recovered/Not Resolved]

NARRATIVE: CASE EVENT DATE: 2015
